FAERS Safety Report 19217166 (Version 1)
Quarter: 2021Q2

REPORT INFORMATION
  Report Type: Spontaneous
  Country: US (occurrence: US)
  Receive Date: 20210505
  Receipt Date: 20210505
  Transmission Date: 20210717
  Serious: Yes (Other)
  Sender: FDA-Public Use
  Company Number: None

PATIENT
  Age: 63 Year
  Sex: Female
  Weight: 65.77 kg

DRUGS (1)
  1. DEPAKENE [Suspect]
     Active Substance: VALPROIC ACID
     Route: 048

REACTIONS (5)
  - Apathy [None]
  - Depression [None]
  - Feeling abnormal [None]
  - Asthenia [None]
  - Suspected product quality issue [None]

NARRATIVE: CASE EVENT DATE: 20100501
